FAERS Safety Report 8277606-5 (Version None)
Quarter: 2012Q2

REPORT INFORMATION
  Report Type: 
  Country: None (occurrence: None)
  Receive Date: 20120412
  Receipt Date: 20120406
  Transmission Date: 20120825
  Serious: Yes (Other)
  Sender: FDA-Public Use
  Company Number: JP-PFIZER INC-2011304799

PATIENT
  Age: 91 Year
  Sex: Male
  Weight: 60 kg

DRUGS (15)
  1. EXACIN [Concomitant]
     Indication: POSTOPERATIVE FEVER
     Dosage: 1 DF, 2X/DAY
     Route: 041
     Dates: start: 20111118, end: 20111120
  2. PIPERACILLIN SODIUM [Concomitant]
     Dosage: 2 G, 2X/DAY
     Route: 041
     Dates: start: 20111127, end: 20111130
  3. CEFOTIAM HYDROCHLORIDE [Concomitant]
     Indication: POSTOPERATIVE FEVER
     Dosage: 1 G, 2X/DAY
     Route: 041
     Dates: start: 20111116, end: 20111117
  4. MINOCYCLINE HCL [Concomitant]
     Indication: POSTOPERATIVE FEVER
     Dosage: 2 G, 2X/DAY
     Route: 041
     Dates: start: 20111123, end: 20111126
  5. PIPERACILLIN SODIUM [Concomitant]
     Indication: PNEUMONIA
     Dosage: 2 G, 2X/DAY
     Route: 041
     Dates: start: 20111101, end: 20111114
  6. ZYVOX [Suspect]
     Indication: PNEUMONIA STAPHYLOCOCCAL
     Dosage: 600 MG, 2X/DAY
     Route: 041
     Dates: start: 20111209, end: 20111209
  7. ZYVOX [Suspect]
     Dosage: 600 MG, 1X/DAY
     Route: 041
     Dates: start: 20111210, end: 20111210
  8. FOSMICIN [Concomitant]
     Indication: POSTOPERATIVE FEVER
     Dosage: 2 G, 2X/DAY
     Route: 041
     Dates: start: 20111117, end: 20111119
  9. IMIPENEM AND CILASTATIN SODIUM [Concomitant]
     Dosage: 0.5 G, 3X/DAY
     Route: 041
     Dates: start: 20111204, end: 20111210
  10. VANCOMYCIN [Concomitant]
     Indication: POSTOPERATIVE FEVER
     Dosage: 0.5 G, 2X/DAY
     Route: 041
     Dates: start: 20111130, end: 20111206
  11. PAZUCROSS [Concomitant]
     Indication: POSTOPERATIVE FEVER
     Dosage: 1 DF, 2X/DAY
     Route: 041
     Dates: start: 20111201, end: 20111208
  12. FOSMICIN [Concomitant]
     Dosage: 2 G, 2X/DAY
     Route: 041
     Dates: start: 20111121, end: 20111122
  13. IMIPENEM AND CILASTATIN SODIUM [Concomitant]
     Indication: POSTOPERATIVE FEVER
     Dosage: 0.5 G, 2X/DAY
     Route: 041
     Dates: start: 20111124, end: 20111130
  14. PIPERACILLIN SODIUM [Concomitant]
     Dosage: 2 G, 3X/DAY
     Route: 041
     Dates: start: 20111207, end: 20111209
  15. PRODIF [Concomitant]
     Dosage: 1 DF, 2X/DAY
     Route: 041
     Dates: start: 20111201, end: 20111204

REACTIONS (1)
  - RENAL FAILURE ACUTE [None]
